FAERS Safety Report 6840120-5 (Version None)
Quarter: 2010Q3

REPORT INFORMATION
  Report Type: 
  Country: None (occurrence: None)
  Receive Date: 20100713
  Receipt Date: 20100713
  Transmission Date: 20110219
  Serious: No
  Sender: FDA-Public Use
  Company Number: None

PATIENT
  Sex: Female
  Weight: 77.1115 kg

DRUGS (1)
  1. ALENDRONATE SODIUM [Suspect]
     Indication: OSTEOPOROSIS
     Dosage: 70 MG Q WK PO
     Route: 048
     Dates: start: 20090501, end: 20100101

REACTIONS (4)
  - ARTHRALGIA [None]
  - BACK PAIN [None]
  - PELVIC PAIN [None]
  - SPINAL DISORDER [None]
